FAERS Safety Report 23937073 (Version 1)
Quarter: 2024Q2

REPORT INFORMATION
  Report Type: Spontaneous
  Country: US (occurrence: US)
  Receive Date: 20240604
  Receipt Date: 20240604
  Transmission Date: 20240716
  Serious: Yes (Life-Threatening, Hospitalization, Other)
  Sender: FDA-Public Use
  Company Number: US-AUROBINDO-AUR-APL-2024-025994

PATIENT
  Age: 46 Year

DRUGS (1)
  1. TESTOSTERONE [Suspect]
     Active Substance: TESTOSTERONE
     Indication: Hormone therapy
     Dosage: UNK
     Route: 065
     Dates: start: 2015, end: 2022

REACTIONS (5)
  - Anaemia [Recovering/Resolving]
  - Hypotension [Recovering/Resolving]
  - Varices oesophageal [Recovering/Resolving]
  - Portal hypertension [Recovering/Resolving]
  - Hepatic function abnormal [Unknown]
